FAERS Safety Report 6535977-1 (Version None)
Quarter: 2010Q1

REPORT INFORMATION
  Report Type: 
  Country: None (occurrence: None)
  Receive Date: 20100113
  Receipt Date: 20100107
  Transmission Date: 20100710
  Serious: Yes (Hospitalization)
  Sender: FDA-Public Use
  Company Number: B0524681A

PATIENT
  Age: 62 Year
  Sex: Male

DRUGS (4)
  1. CETIRIZINE HCL [Suspect]
     Indication: PRURITUS
     Route: 065
  2. ATARAX [Suspect]
     Indication: PRURITUS
     Dosage: 25MG FOUR TIMES PER DAY
     Route: 048
  3. ACITRETIN [Suspect]
     Route: 065
     Dates: start: 20071110, end: 20080108
  4. ZOPICLONE [Concomitant]
     Indication: INSOMNIA
     Route: 048
     Dates: start: 20071108, end: 20071127

REACTIONS (5)
  - CONDITION AGGRAVATED [None]
  - DRUG INEFFECTIVE [None]
  - RASH ERYTHEMATOUS [None]
  - RASH GENERALISED [None]
  - RASH MACULO-PAPULAR [None]
